FAERS Safety Report 15694187 (Version 3)
Quarter: 2019Q1

REPORT INFORMATION
  Report Type: Spontaneous
  Country: JP (occurrence: JP)
  Receive Date: 20181206
  Receipt Date: 20190131
  Transmission Date: 20190417
  Serious: Yes (Other)
  Sender: FDA-Public Use
  Company Number: JP-TEVA-2018-JP-982304

PATIENT
  Age: 80 Year
  Sex: Female
  Weight: 47 kg

DRUGS (1)
  1. RISEDRONATE SODIUM - BP [Suspect]
     Active Substance: RISEDRONATE SODIUM
     Indication: PRODUCT USED FOR UNKNOWN INDICATION
     Route: 048

REACTIONS (8)
  - Bone disorder [Unknown]
  - Pathological fracture [Unknown]
  - Fracture [Unknown]
  - Sciatica [Unknown]
  - Exostosis [Unknown]
  - Femur fracture [Unknown]
  - Pain in extremity [Recovered/Resolved]
  - Atypical femur fracture [Recovered/Resolved]
